FAERS Safety Report 18475194 (Version 25)
Quarter: 2025Q3

REPORT INFORMATION
  Report Type: Report from Study
  Country: US (occurrence: US)
  Receive Date: 20201106
  Receipt Date: 20250819
  Transmission Date: 20251021
  Serious: Yes (Hospitalization, Other)
  Sender: TAKEDA
  Company Number: US-SHIRE-US202004537

PATIENT
  Age: 48 Year
  Sex: Female
  Weight: 91 kg

DRUGS (32)
  1. LANADELUMAB [Suspect]
     Active Substance: LANADELUMAB
     Indication: Immune system disorder
     Dosage: 300 MILLIGRAM, Q2WEEKS
  2. LANADELUMAB [Suspect]
     Active Substance: LANADELUMAB
  3. LANADELUMAB [Suspect]
     Active Substance: LANADELUMAB
  4. ICATIBANT [Suspect]
     Active Substance: ICATIBANT ACETATE
     Indication: Product used for unknown indication
  5. ICATIBANT [Suspect]
     Active Substance: ICATIBANT ACETATE
  6. HYDROCHLOROTHIAZIDE [Suspect]
     Active Substance: HYDROCHLOROTHIAZIDE
     Indication: Product used for unknown indication
  7. COREG [Concomitant]
     Active Substance: CARVEDILOL
  8. METFORMIN HYDROCHLORIDE [Concomitant]
     Active Substance: METFORMIN HYDROCHLORIDE
  9. AMITRIPTYLINE HYDROCHLORIDE [Concomitant]
     Active Substance: AMITRIPTYLINE HYDROCHLORIDE
  10. STRATTERA [Concomitant]
     Active Substance: ATOMOXETINE HYDROCHLORIDE
  11. VITAMIN D [Concomitant]
     Active Substance: VITAMIN D NOS
  12. LIPITOR [Concomitant]
     Active Substance: ATORVASTATIN CALCIUM
  13. SYNTHROID [Concomitant]
     Active Substance: LEVOTHYROXINE SODIUM
  14. DIAZEPAM [Concomitant]
     Active Substance: DIAZEPAM
  15. BUSPIRONE HCL [Concomitant]
     Active Substance: BUSPIRONE HYDROCHLORIDE
  16. TRULICITY [Concomitant]
     Active Substance: DULAGLUTIDE
  17. MONTELUKAST SODIUM [Concomitant]
     Active Substance: MONTELUKAST SODIUM
  18. SALINE [Concomitant]
     Active Substance: SODIUM CHLORIDE
  19. WELLBUTRIN [Concomitant]
     Active Substance: BUPROPION HYDROCHLORIDE
  20. BYDUREON BCISE [Concomitant]
     Active Substance: EXENATIDE
  21. PERCOCET [Concomitant]
     Active Substance: ACETAMINOPHEN\OXYCODONE HYDROCHLORIDE
  22. ZOLOFT [Concomitant]
     Active Substance: SERTRALINE HYDROCHLORIDE
  23. CLONAZEPAM [Concomitant]
     Active Substance: CLONAZEPAM
  24. FARXIGA [Concomitant]
     Active Substance: DAPAGLIFLOZIN PROPANEDIOL
  25. ZANAFLEX [Concomitant]
     Active Substance: TIZANIDINE HYDROCHLORIDE
  26. ERGOCALCIFEROL [Concomitant]
     Active Substance: ERGOCALCIFEROL
  27. INSULIN GLARGINE-YFGN [Concomitant]
     Active Substance: INSULIN GLARGINE-YFGN
  28. ROSUVASTATIN CALCIUM [Concomitant]
     Active Substance: ROSUVASTATIN CALCIUM
  29. VYVANSE [Concomitant]
     Active Substance: LISDEXAMFETAMINE DIMESYLATE
  30. OLANZAPINE [Concomitant]
     Active Substance: OLANZAPINE
  31. ENALAPRIL MALEATE [Concomitant]
     Active Substance: ENALAPRIL MALEATE
  32. CARDIZEM [Concomitant]
     Active Substance: DILTIAZEM HYDROCHLORIDE

REACTIONS (21)
  - Graves^ disease [Unknown]
  - Dental caries [Unknown]
  - Post procedural swelling [Unknown]
  - Malaise [Unknown]
  - Sinusitis [Unknown]
  - Food poisoning [Unknown]
  - Suspected COVID-19 [Unknown]
  - Somnolence [Unknown]
  - Limb injury [Unknown]
  - Road traffic accident [Unknown]
  - Urinary tract infection [Unknown]
  - Product dose omission in error [Unknown]
  - Product dose omission issue [Unknown]
  - Inappropriate schedule of product administration [Unknown]
  - Insurance issue [Unknown]
  - Product use issue [Unknown]
  - Mental disorder [Unknown]
  - Drug hypersensitivity [Unknown]
  - Memory impairment [Unknown]
  - Illness [Unknown]
  - Hereditary angioedema [Not Recovered/Not Resolved]

NARRATIVE: CASE EVENT DATE: 20240306
